FAERS Safety Report 5457401-2 (Version None)
Quarter: 2007Q3

REPORT INFORMATION
  Report Type: 
  Country: None (occurrence: None)
  Receive Date: 20070918
  Receipt Date: 20070228
  Transmission Date: 20080115
  Serious: Yes (Hospitalization)
  Sender: FDA-Public Use
  Company Number: US-ASTRAZENECA-2007UW04058

PATIENT
  Age: 29 Year
  Sex: Female
  Weight: 86.4 kg

DRUGS (2)
  1. SEROQUEL [Suspect]
     Indication: BIPOLAR DISORDER
     Dosage: 300 MG - 600 MG
     Route: 048
     Dates: start: 20020101, end: 20070101
  2. SEROQUEL [Suspect]
     Indication: AFFECTIVE DISORDER
     Dosage: 300 MG - 600 MG
     Route: 048
     Dates: start: 20020101, end: 20070101

REACTIONS (3)
  - DEPRESSION [None]
  - DIABETES MELLITUS [None]
  - WEIGHT INCREASED [None]
